FAERS Safety Report 20292335 (Version 2)
Quarter: 2022Q1

REPORT INFORMATION
  Report Type: Spontaneous
  Country: SE (occurrence: SE)
  Receive Date: 20220104
  Receipt Date: 20220120
  Transmission Date: 20220423
  Serious: Yes (Hospitalization)
  Sender: FDA-Public Use
  Company Number: None

PATIENT
  Age: 34 Year
  Sex: Female

DRUGS (4)
  1. RITUXIMAB [Suspect]
     Active Substance: RITUXIMAB
     Indication: Multiple sclerosis
     Dosage: 1000 MG
     Route: 042
     Dates: start: 20160405, end: 20160405
  2. RITUXIMAB [Suspect]
     Active Substance: RITUXIMAB
     Dosage: (6 MONTHLY)
     Dates: start: 20161004
  3. RITUXIMAB [Suspect]
     Active Substance: RITUXIMAB
     Dosage: (6 MONTHLY)
     Dates: start: 20170406
  4. RITUXIMAB [Suspect]
     Active Substance: RITUXIMAB
     Dosage: (6 MONTHLY)
     Dates: start: 20171004, end: 20171004

REACTIONS (2)
  - Meningitis viral [Recovered/Resolved]
  - Off label use [Unknown]

NARRATIVE: CASE EVENT DATE: 20160405
